FAERS Safety Report 8019480-8 (Version None)
Quarter: 2012Q1

REPORT INFORMATION
  Report Type: 
  Country: None (occurrence: None)
  Receive Date: 20120103
  Receipt Date: 20111228
  Transmission Date: 20120608
  Serious: Yes (Hospitalization)
  Sender: FDA-Public Use
  Company Number: PHHY2011DE88651

PATIENT
  Age: 78 Year
  Sex: Female
  Weight: 55 kg

DRUGS (3)
  1. EXELON [Suspect]
     Dosage: 9.5  MG/24 HOURS
     Route: 062
  2. EXELON [Suspect]
     Indication: DEMENTIA
     Dosage: 4.6 MG/24 HOURS
     Route: 062
  3. AXURA [Concomitant]
     Indication: DEMENTIA
     Dosage: UNK UKN, UNK

REACTIONS (8)
  - OEDEMA [None]
  - GAMMA-GLUTAMYLTRANSFERASE INCREASED [None]
  - HEPATOMEGALY [None]
  - ASPARTATE AMINOTRANSFERASE INCREASED [None]
  - ALANINE AMINOTRANSFERASE INCREASED [None]
  - HYDROCHOLECYSTIS [None]
  - BLOOD ALKALINE PHOSPHATASE INCREASED [None]
  - BILE DUCT STENOSIS [None]
